FAERS Safety Report 4489974-0 (Version None)
Quarter: 2004Q4

REPORT INFORMATION
  Report Type: 
  Country: None (occurrence: None)
  Receive Date: 20041101
  Receipt Date: 20041022
  Transmission Date: 20050328
  Serious: Yes (Life-Threatening)
  Sender: FDA-Public Use
  Company Number: JP-GLAXOSMITHKLINE-B0349431A

PATIENT
  Age: 37 Year
  Sex: Male

DRUGS (6)
  1. COMBIVIR [Suspect]
     Indication: HIV INFECTION
     Dosage: 1TAB TWICE PER DAY
     Route: 048
     Dates: start: 20040216
  2. KALETRA [Suspect]
     Indication: HIV INFECTION
     Dosage: 3CAP TWICE PER DAY
     Route: 048
     Dates: start: 20040216, end: 20040312
  3. ALESION [Concomitant]
     Indication: SEASONAL ALLERGY
     Dosage: 1 PER DAY
     Route: 048
     Dates: start: 20040216
  4. PL [Concomitant]
     Indication: NASOPHARYNGITIS
     Dosage: 3 PER DAY
     Route: 048
     Dates: start: 20040216, end: 20040222
  5. DASEN [Concomitant]
     Indication: NASOPHARYNGITIS
     Dosage: 3 PER DAY
     Route: 048
     Dates: start: 20040216, end: 20040222
  6. INTAL [Concomitant]
     Indication: SEASONAL ALLERGY
     Route: 031
     Dates: start: 20040101

REACTIONS (2)
  - PALPITATIONS [None]
  - TACHYCARDIA [None]
